FAERS Safety Report 13312571 (Version 1)
Quarter: 2017Q1

REPORT INFORMATION
  Report Type: Spontaneous
  Country: MX (occurrence: MX)
  Receive Date: 20170309
  Receipt Date: 20170309
  Transmission Date: 20170428
  Serious: Yes (Other)
  Sender: FDA-Public Use
  Company Number: MX-PFIZER INC-2017101395

PATIENT
  Age: 56 Year
  Sex: Male

DRUGS (2)
  1. MINIPRES [Suspect]
     Active Substance: PRAZOSIN HYDROCHLORIDE
     Dosage: UNK
  2. ALDACTONE [Suspect]
     Active Substance: SPIRONOLACTONE
     Dosage: 100 MG, UNK

REACTIONS (2)
  - Altered state of consciousness [Not Recovered/Not Resolved]
  - Speech disorder [Not Recovered/Not Resolved]
